FAERS Safety Report 5762625-0 (Version None)
Quarter: 2008Q2

REPORT INFORMATION
  Report Type: 
  Country: None (occurrence: None)
  Receive Date: 20080609
  Receipt Date: 20080521
  Transmission Date: 20081010
  Serious: No
  Sender: FDA-Public Use
  Company Number: US-BAYER-200824113NA

PATIENT

DRUGS (1)
  1. MAGNEVIST [Suspect]
     Dates: start: 20080101, end: 20080101

REACTIONS (1)
  - URTICARIA [None]
